FAERS Safety Report 5351318-X (Version None)
Quarter: 2007Q2

REPORT INFORMATION
  Report Type: 
  Country: None (occurrence: None)
  Receive Date: 20070608
  Receipt Date: 20070601
  Transmission Date: 20071010
  Serious: Yes (Hospitalization)
  Sender: FDA-Public Use
  Company Number: US-ROXANE LABORATORIES, INC-2007-BP-07541RO

PATIENT
  Age: 56 Year
  Sex: Female

DRUGS (2)
  1. PREDNISONE TAB [Suspect]
     Indication: IMMUNOSUPPRESSION
     Dosage: ^HIGH-DOSE^
  2. TACROLIMUS [Suspect]
     Indication: IMMUNOSUPPRESSION

REACTIONS (4)
  - CARDIAC FAILURE [None]
  - DISEASE RECURRENCE [None]
  - PULMONARY HYPERTENSION [None]
  - SCLERODERMA RENAL CRISIS [None]
